FAERS Safety Report 5841550-0 (Version None)
Quarter: 2008Q3

REPORT INFORMATION
  Report Type: 
  Country: None (occurrence: None)
  Receive Date: 20080812
  Receipt Date: 20080801
  Transmission Date: 20090109
  Serious: Yes (Hospitalization)
  Sender: FDA-Public Use
  Company Number: US-ROCHE-579069

PATIENT
  Sex: Female

DRUGS (5)
  1. BONIVA [Suspect]
     Indication: OSTEOPOROSIS
     Route: 048
     Dates: start: 20070101
  2. REMICADE [Suspect]
     Indication: CROHN'S DISEASE
     Dosage: ONCE EVERY SIX WEEKS
     Route: 065
     Dates: start: 19530101
  3. REMICADE [Suspect]
     Dosage: ONCE EVERY FIVE WEEKS
     Route: 065
  4. REMICADE [Suspect]
     Dosage: ONCE EVERY FOUR WEEKS
     Route: 065
  5. CIPRO [Suspect]
     Indication: DRUG USE FOR UNKNOWN INDICATION
     Route: 065
     Dates: start: 20080721

REACTIONS (8)
  - ANAEMIA [None]
  - DEHYDRATION [None]
  - IMMUNE SYSTEM DISORDER [None]
  - KIDNEY INFECTION [None]
  - PNEUMONIA [None]
  - RASH [None]
  - RESPIRATORY TRACT INFECTION [None]
  - SINUSITIS [None]
